FAERS Safety Report 6393099-7 (Version None)
Quarter: 2009Q4

REPORT INFORMATION
  Report Type: 
  Country: None (occurrence: None)
  Receive Date: 20091008
  Receipt Date: 20091002
  Transmission Date: 20100525
  Serious: Yes (Hospitalization)
  Sender: FDA-Public Use
  Company Number: DE-ROCHE-660188

PATIENT
  Sex: Female
  Weight: 65 kg

DRUGS (7)
  1. CAPECITABINE [Suspect]
     Indication: COLORECTAL CANCER STAGE IV
     Dosage: DATE OF LAST DOSE PRIOR TO THE EVENT: 27 SEP 2009
     Route: 048
     Dates: start: 20090317
  2. BEVACIZUMAB [Suspect]
     Indication: COLORECTAL CANCER STAGE IV
     Dosage: FORM: INFUSION, DATE OF LAST DOSE PRIOR TO THE EVENT: 23 SEP 2009
     Route: 042
     Dates: start: 20090317
  3. IMATINIB MESYLATE [Suspect]
     Indication: COLORECTAL CANCER STAGE IV
     Dosage: DATE OF LAST DOSE PRIOR TO THE EVENT: 27 SEP 2009
     Route: 048
     Dates: start: 20090317
  4. OXALIPLATIN [Suspect]
     Indication: COLORECTAL CANCER STAGE IV
     Dosage: FORM: INFUSION, LAST DOSE PRIOR TO THE EVENT: 23 SEP 2009
     Route: 065
     Dates: start: 20090317
  5. OMEP [Concomitant]
     Dates: start: 20090317
  6. MORPHINE [Concomitant]
     Dosage: 10 RETARD
     Dates: start: 20090317
  7. AMITRIPTYLINE HCL [Concomitant]
     Dates: start: 20090317

REACTIONS (1)
  - SKIN MACERATION [None]
